FAERS Safety Report 21928236 (Version 3)
Quarter: 2023Q1

REPORT INFORMATION
  Report Type: Report from Study
  Country: US (occurrence: US)
  Receive Date: 20230130
  Receipt Date: 20230329
  Transmission Date: 20230417
  Serious: Yes (Other)
  Sender: FDA-Public Use
  Company Number: US-ABBVIE-4284701

PATIENT
  Age: 65 Year
  Sex: Female

DRUGS (4)
  1. IMBRUVICA [Suspect]
     Active Substance: IBRUTINIB
     Indication: Chronic lymphocytic leukaemia
     Dosage: LAST ADMIN DATE: 2022 LOWER DOSE FROM 480 TO 280
     Route: 048
     Dates: start: 20140101
  2. IMBRUVICA [Suspect]
     Active Substance: IBRUTINIB
     Indication: Chronic lymphocytic leukaemia
     Route: 048
     Dates: start: 20140101
  3. IMBRUVICA [Suspect]
     Active Substance: IBRUTINIB
     Indication: Chronic lymphocytic leukaemia
     Route: 048
     Dates: start: 2013
  4. IMBRUVICA [Suspect]
     Active Substance: IBRUTINIB
     Indication: Chronic lymphocytic leukaemia
     Route: 048
     Dates: start: 20220926

REACTIONS (11)
  - Sinusitis [Recovering/Resolving]
  - Cardiomegaly [Unknown]
  - Cardiac disorder [Unknown]
  - Pneumonia [Recovering/Resolving]
  - Atrial fibrillation [Unknown]
  - COVID-19 [Unknown]
  - Atrial fibrillation [Recovered/Resolved]
  - Dyspnoea [Unknown]
  - Sinus polyp [Recovering/Resolving]
  - Frequent bowel movements [Unknown]
  - Immune system disorder [Unknown]

NARRATIVE: CASE EVENT DATE: 20130126
